FAERS Safety Report 7711062-8 (Version None)
Quarter: 2011Q3

REPORT INFORMATION
  Report Type: 
  Country: None (occurrence: None)
  Receive Date: 20110826
  Receipt Date: 20110818
  Transmission Date: 20111222
  Serious: Yes (Hospitalization)
  Sender: FDA-Public Use
  Company Number: US-BIOGENIDEC-2011BI012833

PATIENT
  Age: 54 Year
  Sex: Female

DRUGS (3)
  1. MEDICATION (NOS) [Concomitant]
  2. TYSABRI [Suspect]
     Route: 042
     Dates: start: 20110322
  3. TYSABRI [Suspect]
     Indication: MULTIPLE SCLEROSIS
     Route: 042
     Dates: start: 20070831, end: 20100308

REACTIONS (8)
  - ASTHENIA [None]
  - PARALYSIS [None]
  - URINARY TRACT INFECTION [None]
  - PHYSICAL DISABILITY [None]
  - MUSCLE CONTRACTIONS INVOLUNTARY [None]
  - PYREXIA [None]
  - OEDEMA PERIPHERAL [None]
  - COGNITIVE DISORDER [None]
